FAERS Safety Report 11831503 (Version 3)
Quarter: 2018Q1

REPORT INFORMATION
  Report Type: Spontaneous
  Country: US (occurrence: US)
  Receive Date: 20151214
  Receipt Date: 20180315
  Transmission Date: 20180508
  Serious: Yes (Hospitalization, Disabling)
  Sender: FDA-Public Use
  Company Number: US-ENDO PHARMACEUTICALS INC.-2015-004863

PATIENT
  Age: 77 Year
  Sex: Male
  Weight: 97.51 kg

DRUGS (3)
  1. DEPO TESTOSTERONE [Suspect]
     Active Substance: TESTOSTERONE
     Dosage: UNK UNKNOWN, Q2W
     Route: 065
     Dates: start: 200004, end: 200010
  2. TESTOPEL [Suspect]
     Active Substance: TESTOSTERONE
     Indication: ANDROGEN REPLACEMENT THERAPY
     Dosage: UNK UNKNOWN, EVERY 6 MONTHS
     Route: 058
     Dates: start: 201208, end: 201309
  3. DEPO TESTOSTERONE [Suspect]
     Active Substance: TESTOSTERONE
     Indication: ANDROGEN REPLACEMENT THERAPY
     Dosage: UNK UNKNOWN, Q2W
     Route: 065
     Dates: start: 201112, end: 201208

REACTIONS (4)
  - Type 2 diabetes mellitus [Unknown]
  - Acute myocardial infarction [Not Recovered/Not Resolved]
  - Coronary artery disease [Not Recovered/Not Resolved]
  - Transient ischaemic attack [Not Recovered/Not Resolved]

NARRATIVE: CASE EVENT DATE: 20120906
